FAERS Safety Report 6731181-2 (Version None)
Quarter: 2010Q2

REPORT INFORMATION
  Report Type: 
  Country: None (occurrence: None)
  Receive Date: 20100517
  Receipt Date: 20100517
  Transmission Date: 20101027
  Serious: Yes (Hospitalization)
  Sender: FDA-Public Use
  Company Number: None

PATIENT
  Sex: Female
  Weight: 41.8 kg

DRUGS (3)
  1. CARBOPLATIN [Suspect]
     Dosage: 1608 MG
  2. ERBITUX [Suspect]
     Dosage: 3312 MG
  3. TAXOL [Suspect]
     Dosage: 652.6 MG

REACTIONS (2)
  - ARTERIAL THROMBOSIS LIMB [None]
  - PERIPHERAL COLDNESS [None]
